FAERS Safety Report 10390601 (Version 1)
Quarter: 2014Q3

REPORT INFORMATION
  Report Type: Spontaneous
  Country: GB (occurrence: None)
  Receive Date: 20140814
  Receipt Date: 20140814
  Transmission Date: 20150326
  Serious: Yes (Life-Threatening, Hospitalization)
  Sender: FDA-Public Use
  Company Number: AUR-APL-2014-08498

PATIENT
  Age: 68 Year
  Sex: Male
  Weight: 63 kg

DRUGS (5)
  1. RISEDRONATE [Suspect]
     Active Substance: RISEDRONATE SODIUM
     Indication: OSTEOPOROSIS
     Dosage: 1 DF , ONCER IN YEAAR, UNKNOWN
  2. BECOTIDE (BECLOMETASONE DIPRIONATE) [Concomitant]
  3. BECONASE (BECLOMETASONE DIPROPIONATE) [Concomitant]
  4. VENTOLIN [Concomitant]
     Active Substance: ALBUTEROL SULFATE
  5. ALENDRONIC ACID (ALENDRONIC ACID) UNKNOWN, UNKNOWN [Suspect]
     Active Substance: ALENDRONIC ACID
     Indication: OSTEOPOROSIS
     Dosage: 1 UNK, UNK, ORAL

REACTIONS (2)
  - Oesophageal carcinoma [None]
  - Dysphagia [None]

NARRATIVE: CASE EVENT DATE: 2014
